FAERS Safety Report 24730852 (Version 1)
Quarter: 2024Q4

REPORT INFORMATION
  Report Type: Spontaneous
  Country: GR (occurrence: GR)
  Receive Date: 20241213
  Receipt Date: 20241213
  Transmission Date: 20250115
  Serious: Yes (Disabling, Other)
  Sender: CHEPLAPHARM
  Company Number: None

PATIENT
  Age: 54 Year
  Sex: Male

DRUGS (4)
  1. CAPECITABINE [Suspect]
     Active Substance: CAPECITABINE
     Indication: Adenocarcinoma gastric
     Dosage: 6 PILLS OF 500 MG EACH WEEKLY, 3 WEEKS TREATMENT AND ONE WEEK INTERMISSION
  2. DOCETAXEL [Suspect]
     Active Substance: DOCETAXEL
     Indication: Adenocarcinoma gastric
     Dosage: 120 MG IN TOTAL; 3 WEEK TREATMENT AND ONE WEEK INTERMISSION, 2-5 CYCLES
  3. CARBOPLATIN [Suspect]
     Active Substance: CARBOPLATIN
     Indication: Adenocarcinoma gastric
     Dosage: 450 MG, WEEKLY TREATMENT REGIMEN
  4. DEXAMETHASONE [Suspect]
     Active Substance: DEXAMETHASONE
     Indication: Adenocarcinoma gastric
     Dosage: 3 WEEKLY D TREATMENT REGIME; FOR A TOTAL OF 6 CYCLES

REACTIONS (2)
  - Lacrimation increased [Unknown]
  - Dacryostenosis acquired [Unknown]
